FAERS Safety Report 4937339-7 (Version None)
Quarter: 2006Q1

REPORT INFORMATION
  Report Type: 
  Country: None (occurrence: None)
  Receive Date: 20060309
  Receipt Date: 20060217
  Transmission Date: 20060701
  Serious: Yes (Hospitalization, Other)
  Sender: FDA-Public Use
  Company Number: CA-ABBOTT-06P-087-0325384-00

PATIENT
  Age: 30 Year
  Sex: Male

DRUGS (11)
  1. DIVALPROEX SODIUM [Suspect]
     Indication: MANIA
  2. DIVALPROEX SODIUM [Suspect]
  3. DIVALPROEX SODIUM [Suspect]
  4. LOPINAVIR/RITONAVIR [Interacting]
     Indication: DRUG USE FOR UNKNOWN INDICATION
     Dosage: 133MG/33MG
  5. ZIDOVUDINE [Concomitant]
     Indication: DRUG USE FOR UNKNOWN INDICATION
  6. LAMIVUDINE [Concomitant]
     Indication: DRUG USE FOR UNKNOWN INDICATION
  7. AZITHROMYCIN [Concomitant]
     Indication: DRUG USE FOR UNKNOWN INDICATION
  8. BACTRIM [Concomitant]
     Indication: DRUG USE FOR UNKNOWN INDICATION
     Dosage: 160MG/800MG
  9. TRAZODONE [Concomitant]
     Indication: DRUG USE FOR UNKNOWN INDICATION
  10. PAROXETINE [Concomitant]
     Indication: DRUG USE FOR UNKNOWN INDICATION
  11. SERTRALINE [Concomitant]
     Indication: DRUG USE FOR UNKNOWN INDICATION

REACTIONS (4)
  - DRUG EFFECT DECREASED [None]
  - DRUG INTERACTION [None]
  - DRUG LEVEL DECREASED [None]
  - MANIA [None]
